FAERS Safety Report 10521740 (Version 1)
Quarter: 2014Q4

REPORT INFORMATION
  Report Type: Spontaneous
  Country: BR (occurrence: None)
  Receive Date: 20141014
  Receipt Date: 20141014
  Transmission Date: 20150528
  Serious: Yes (Other)
  Sender: FDA-Public Use
  Company Number: VAL_03413_2014

PATIENT
  Sex: Female
  Weight: 60 kg

DRUGS (1)
  1. PARLODEL [Suspect]
     Active Substance: BROMOCRIPTINE MESYLATE
     Indication: BLOOD PROLACTIN INCREASED
     Dosage: (5 MG QD, 2 TABLETS AT NIGHT DURING 4 DAYS ORAL)
     Route: 048
     Dates: start: 20140909, end: 20140912

REACTIONS (6)
  - Visual impairment [None]
  - Vomiting [None]
  - Dizziness [None]
  - Blood pressure systolic decreased [None]
  - Nausea [None]
  - Syncope [None]
